FAERS Safety Report 6000177-0 (Version None)
Quarter: 2008Q4

REPORT INFORMATION
  Report Type: 
  Country: None (occurrence: None)
  Receive Date: 20081211
  Receipt Date: 20081211
  Transmission Date: 20090506
  Serious: Yes (Disabling)
  Sender: FDA-Public Use
  Company Number: None

PATIENT
  Sex: Male
  Weight: 88.4514 kg

DRUGS (1)
  1. LEVITRA [Suspect]
     Indication: ERECTILE DYSFUNCTION
     Dosage: 20 MG TWICE A WEEK PO
     Route: 048
     Dates: start: 20061001, end: 20081001

REACTIONS (3)
  - DEAFNESS NEUROSENSORY [None]
  - DEAFNESS UNILATERAL [None]
  - TINNITUS [None]
